FAERS Safety Report 9207470 (Version 3)
Quarter: 2013Q2

REPORT INFORMATION
  Report Type: Report from Study
  Country: GB (occurrence: GB)
  Receive Date: 20130403
  Receipt Date: 20130502
  Transmission Date: 20140414
  Serious: Yes (Hospitalization)
  Sender: FDA-Public Use
  Company Number: GB-ROCHE-1204807

PATIENT
  Age: 65 Year
  Sex: Female
  Weight: 77.2 kg

DRUGS (8)
  1. TRASTUZUMAB [Suspect]
     Indication: BREAST CANCER
     Route: 065
     Dates: start: 20120925
  2. TRASTUZUMAB [Suspect]
     Dosage: MAINTENANCE DOSE AS PER PROTOCOL
     Route: 042
  3. TRASTUZUMAB [Suspect]
     Dosage: LOADING DOSE AS PER PROTOCOL
     Route: 042
     Dates: start: 20130319
  4. SIMVASTATIN [Concomitant]
     Route: 065
  5. CO-TENIDONE [Concomitant]
     Route: 065
  6. ANASTROZOLE [Concomitant]
     Route: 065
     Dates: start: 20121123
  7. PERTUZUMAB [Suspect]
     Indication: BREAST CANCER
     Route: 042
     Dates: start: 20120925
  8. PERTUZUMAB [Suspect]
     Dosage: MOST RECENT DOSE PRIOR TO SAE: 25/FEB/2013. TEMPORARILY INTERRUPTED 15/MAR/2013.
     Route: 042
     Dates: end: 20130315

REACTIONS (1)
  - Skin infection [Recovered/Resolved]
